FAERS Safety Report 16754384 (Version 1)
Quarter: 2019Q4

REPORT INFORMATION
  Report Type: Spontaneous
  Country: US (occurrence: US)
  Receive Date: 20190828
  Receipt Date: 20190828
  Transmission Date: 20200122
  Serious: Yes (Life-Threatening, Hospitalization, Disabling)
  Sender: FDA-Public Use
  Company Number: None

PATIENT
  Age: 65 Year
  Sex: Male
  Weight: 122 kg

DRUGS (7)
  1. AMLODIPINE 10 MG PO DAILY [Concomitant]
  2. CLONIDINE 0.1 MG PO BID [Concomitant]
  3. RIVAROXABAN [Suspect]
     Active Substance: RIVAROXABAN
     Indication: ATRIAL FIBRILLATION
     Route: 048
  4. LISINOPRIL 40 MG PO DAILY [Concomitant]
  5. GLYBURIDE 5 MG PO DAILY [Concomitant]
  6. METFORMIN 500 MG PO DAILY [Concomitant]
  7. TAMSULOSIN 0.4 MG PO BID [Concomitant]

REACTIONS (1)
  - Cerebral haemorrhage [None]

NARRATIVE: CASE EVENT DATE: 20190826
